FAERS Safety Report 9430325 (Version 1)
Quarter: 2013Q3

REPORT INFORMATION
  Report Type: Report from Study
  Country: US (occurrence: US)
  Receive Date: 20130730
  Receipt Date: 20130730
  Transmission Date: 20140515
  Serious: No
  Sender: FDA-Public Use
  Company Number: US-ABBOTT-13P-163-1078372-00

PATIENT
  Sex: Male
  Weight: 113.5 kg

DRUGS (2)
  1. NIASPAN (COATED) [Suspect]
     Indication: LOW DENSITY LIPOPROTEIN INCREASED
     Dosage: 500 MG DAILY
     Dates: start: 201302
  2. UNKNOWN MEDICATION [Concomitant]
     Indication: GOUT

REACTIONS (5)
  - Fatigue [Unknown]
  - Flushing [Unknown]
  - Generalised erythema [Unknown]
  - Pruritus [Unknown]
  - Erythema [Unknown]
